FAERS Safety Report 6880689-8 (Version None)
Quarter: 2010Q3

REPORT INFORMATION
  Report Type: 
  Country: None (occurrence: None)
  Receive Date: 20100728
  Receipt Date: 20100719
  Transmission Date: 20110219
  Serious: Yes (Hospitalization)
  Sender: FDA-Public Use
  Company Number: 2009BI032353

PATIENT
  Age: 48 Year
  Sex: Female
  Weight: 85 kg

DRUGS (3)
  1. TYSABRI [Suspect]
     Indication: MULTIPLE SCLEROSIS
     Route: 042
     Dates: start: 20080130
  2. TYSABRI [Suspect]
     Route: 042
     Dates: start: 20050221, end: 20050221
  3. TYSABRI [Suspect]
     Route: 042
     Dates: start: 20060828, end: 20070717

REACTIONS (9)
  - ABDOMINAL PAIN UPPER [None]
  - BURSITIS [None]
  - INTERVERTEBRAL DISC DISORDER [None]
  - LOSS OF CONTROL OF LEGS [None]
  - MOBILITY DECREASED [None]
  - MULTIPLE SCLEROSIS RELAPSE [None]
  - PAIN IN EXTREMITY [None]
  - PERONEAL NERVE PALSY [None]
  - URINARY TRACT INFECTION [None]
